FAERS Safety Report 13530782 (Version 1)
Quarter: 2017Q2

REPORT INFORMATION
  Report Type: Spontaneous
  Country: US (occurrence: US)
  Receive Date: 20170510
  Receipt Date: 20170510
  Transmission Date: 20170830
  Serious: Yes (Other)
  Sender: FDA-Public Use
  Company Number: US-AMGEN-USASP2017069863

PATIENT
  Age: 71 Year
  Sex: Male

DRUGS (3)
  1. REPATHA [Suspect]
     Active Substance: EVOLOCUMAB
     Indication: BLOOD CHOLESTEROL INCREASED
     Dosage: 140 MG, Q2WK
     Route: 065
     Dates: start: 20170202
  2. ATORVASTATIN [Concomitant]
     Active Substance: ATORVASTATIN
     Dosage: 80 MG, UNK
  3. EZETIMIBE. [Concomitant]
     Active Substance: EZETIMIBE
     Dosage: 10 MG, UNK

REACTIONS (1)
  - Myocardial infarction [Unknown]

NARRATIVE: CASE EVENT DATE: 201702
